FAERS Safety Report 5482005-5 (Version None)
Quarter: 2007Q4

REPORT INFORMATION
  Report Type: 
  Country: None (occurrence: None)
  Receive Date: 20071004
  Receipt Date: 20070925
  Transmission Date: 20080405
  Serious: Yes (Other)
  Sender: FDA-Public Use
  Company Number: CHPA2007US10037

PATIENT
  Age: 64 Year
  Sex: Female
  Weight: 49.4 kg

DRUGS (2)
  1. EXCEDRIN (MIGRAINE) [Suspect]
     Indication: HEADACHE
     Dosage: 2 DF, BID, ORAL; 2DF, QD, ORAL
     Route: 048
     Dates: start: 20070923, end: 20070923
  2. EXCEDRIN (MIGRAINE) [Suspect]
     Indication: HEADACHE
     Dosage: 2 DF, BID, ORAL; 2DF, QD, ORAL
     Route: 048
     Dates: start: 20070924, end: 20070924

REACTIONS (8)
  - ADVERSE DRUG REACTION [None]
  - EYE PRURITUS [None]
  - EYE SWELLING [None]
  - OVERDOSE [None]
  - PAIN [None]
  - PRURITUS [None]
  - RASH MACULAR [None]
  - SWELLING FACE [None]
